FAERS Safety Report 7108637-6 (Version None)
Quarter: 2010Q4

REPORT INFORMATION
  Report Type: 
  Country: None (occurrence: None)
  Receive Date: 20101117
  Receipt Date: 20101108
  Transmission Date: 20110411
  Serious: Yes (Hospitalization)
  Sender: FDA-Public Use
  Company Number: TR-ROCHE-740254

PATIENT
  Age: 71 Year
  Sex: Male

DRUGS (2)
  1. CAPECITABINE [Suspect]
     Dosage: DISCONTINUED AFTER 8TH CYCLE
     Route: 048
  2. UFT [Suspect]
     Dosage: STOPPED AFTER 2ND CYCLE
     Route: 065

REACTIONS (1)
  - HYPERLIPIDAEMIA [None]
